FAERS Safety Report 24899063 (Version 2)
Quarter: 2025Q1

REPORT INFORMATION
  Report Type: Spontaneous
  Country: GR (occurrence: GR)
  Receive Date: 20250129
  Receipt Date: 20250201
  Transmission Date: 20250409
  Serious: Yes (Death, Life-Threatening, Other)
  Sender: ACCORD
  Company Number: None

PATIENT
  Age: 69 Year
  Sex: Male
  Weight: 99 kg

DRUGS (17)
  1. BORTEZOMIB [Suspect]
     Active Substance: BORTEZOMIB
     Indication: Plasma cell myeloma
     Dates: start: 20240821, end: 20241107
  2. SELINEXOR [Suspect]
     Active Substance: SELINEXOR
     Indication: Plasma cell myeloma
     Dates: start: 20240821, end: 20241107
  3. DEXAMETHASONE [Suspect]
     Active Substance: DEXAMETHASONE
     Indication: Plasma cell myeloma
  4. HALOPERIDOL [Concomitant]
     Active Substance: HALOPERIDOL
     Indication: Delirium
     Dates: start: 20241121
  5. ZYPREXA [Concomitant]
     Active Substance: OLANZAPINE
     Indication: Delirium
     Dates: start: 20241119
  6. BISOPROLOL [Concomitant]
     Active Substance: BISOPROLOL
     Dosage: STRENGTH: 10 MG/TAB, MEDICATION ON 30/11/2024
  7. NEXIUM [Concomitant]
     Active Substance: ESOMEPRAZOLE MAGNESIUM
     Dosage: STRENGTH: 40 MG, MEDICATION ON 30-NOV-2024
  8. ATOVAQUONE [Concomitant]
     Active Substance: ATOVAQUONE
     Dosage: MEDICATION ON 30-NOV-2024
  9. VALTREX [Concomitant]
     Active Substance: VALACYCLOVIR HYDROCHLORIDE
     Dosage: MEDICATION ON 30-NOV-2024
  10. SEROQUEL [Concomitant]
     Active Substance: QUETIAPINE FUMARATE
     Dosage: STRENGTH: 100 MG, MEDICATION ON 30-NOV-2024
  11. CEFTAZIDIME [Concomitant]
     Active Substance: CEFTAZIDIME
     Dosage: STRENGTH: 500 MG, MEDICATION ON 30-NOV-2024
  12. TARGOCID [Concomitant]
     Active Substance: TEICOPLANIN
  13. CALCIUM CARBONATE\CHOLECALCIFEROL [Concomitant]
     Active Substance: CALCIUM CARBONATE\CHOLECALCIFEROL
     Dosage: MEDICATION ON 30-NOV-2024
  14. SOLU-CORTEF [Concomitant]
     Active Substance: HYDROCORTISONE SODIUM SUCCINATE
     Dosage: STRENGTH: 100 MG, MEDICATION ON 30-NOV-2024
  15. AMIODARONE HYDROCHLORIDE [Concomitant]
     Active Substance: AMIODARONE HYDROCHLORIDE
  16. HALOPERIDOL [Concomitant]
     Active Substance: HALOPERIDOL
     Indication: Delirium
     Dosage: STRENGTH: 5 MG, MEDICATION ON 30-NOV-2024
     Dates: start: 20241121
  17. ZYPREXA [Concomitant]
     Active Substance: OLANZAPINE
     Indication: Delirium
     Dosage: MEDICATION ON 30-NOV-2024, STRENGTH: 10 MG
     Dates: start: 20241119

REACTIONS (2)
  - Delirium [Not Recovered/Not Resolved]
  - Cataplexy [Fatal]

NARRATIVE: CASE EVENT DATE: 20241121
